FAERS Safety Report 6409371-8 (Version None)
Quarter: 2009Q4

REPORT INFORMATION
  Report Type: 
  Country: None (occurrence: None)
  Receive Date: 20091021
  Receipt Date: 20091019
  Transmission Date: 20100525
  Serious: Yes (Death, Hospitalization)
  Sender: FDA-Public Use
  Company Number: TH-SANOFI-SYNTHELABO-F01200800018

PATIENT
  Sex: Male
  Weight: 42 kg

DRUGS (3)
  1. DOXORUBICIN HCL [Suspect]
     Indication: HEPATIC NEOPLASM MALIGNANT
     Route: 041
     Dates: start: 20071226, end: 20071226
  2. ONDANSETRON [Concomitant]
     Route: 041
     Dates: start: 20071226, end: 20071226
  3. DEXAMETHASONE 0.5MG TAB [Concomitant]
     Route: 041
     Dates: start: 20071226, end: 20071226

REACTIONS (2)
  - FEBRILE NEUTROPENIA [None]
  - THROMBOCYTOPENIA [None]
